FAERS Safety Report 6854245-1 (Version None)
Quarter: 2010Q3

REPORT INFORMATION
  Report Type: 
  Country: None (occurrence: None)
  Receive Date: 20100717
  Receipt Date: 20080102
  Transmission Date: 20110219
  Serious: No
  Sender: FDA-Public Use
  Company Number: US-PFIZER INC-2008001814

PATIENT
  Sex: Female
  Weight: 90.454 kg

DRUGS (14)
  1. CHANTIX [Suspect]
     Indication: SMOKING CESSATION THERAPY
     Dates: start: 20071217
  2. LYRICA [Suspect]
  3. ADIPEX [Concomitant]
     Indication: WEIGHT CONTROL
  4. FENTANYL [Concomitant]
  5. RESTORIL [Concomitant]
  6. HUMALOG [Concomitant]
  7. DICLOFENAC [Concomitant]
  8. LIDODERM [Concomitant]
  9. CYMBALTA [Concomitant]
     Dates: end: 20071201
  10. SEROQUEL [Concomitant]
     Dates: end: 20071201
  11. CLONAZEPAM [Concomitant]
     Dates: end: 20071201
  12. REMERON [Concomitant]
     Dates: end: 20071201
  13. HYDROCODONE [Concomitant]
     Dates: end: 20071201
  14. LORTAB [Concomitant]
     Dates: end: 20071201

REACTIONS (3)
  - HYPERSOMNIA [None]
  - NAUSEA [None]
  - RETCHING [None]
